FAERS Safety Report 8410727-2 (Version None)
Quarter: 2012Q2

REPORT INFORMATION
  Report Type: 
  Country: None (occurrence: None)
  Receive Date: 20120605
  Receipt Date: 20120524
  Transmission Date: 20120825
  Serious: Yes (Hospitalization)
  Sender: FDA-Public Use
  Company Number: US-COVIDIEN/TYCO HEALTHCARE/MALLINCKRODT-T201201943

PATIENT
  Sex: Female

DRUGS (5)
  1. GLYBURIDE [Concomitant]
     Indication: DIABETES MELLITUS
     Dosage: UNK
  2. ^A STATIN DRUG^ [Concomitant]
     Dosage: UNK
  3. COUMADIN [Concomitant]
     Indication: ATRIAL FIBRILLATION
     Dosage: UNK
  4. PENNSAID [Suspect]
     Indication: ARTHRALGIA
     Dosage: 40 GTT, QD
     Route: 061
     Dates: start: 20120507, end: 20120509
  5. LASIX [Concomitant]
     Indication: CARDIAC FAILURE CONGESTIVE
     Dosage: UNK

REACTIONS (2)
  - GASTROINTESTINAL ULCER HAEMORRHAGE [None]
  - VOMITING [None]
